FAERS Safety Report 9473527 (Version 1)
Quarter: 2013Q3

REPORT INFORMATION
  Report Type: Spontaneous
  Country: US (occurrence: US)
  Receive Date: 20130823
  Receipt Date: 20130823
  Transmission Date: 20140515
  Serious: No
  Sender: FDA-Public Use
  Company Number: US-GALDERMA-US13000990

PATIENT
  Sex: Female

DRUGS (10)
  1. METROGEL (METRONIDAZOLE) GEL, 1% [Suspect]
     Indication: ROSACEA
     Route: 061
     Dates: start: 1993, end: 201302
  2. COREG [Concomitant]
     Indication: HYPERTENSION
     Route: 048
  3. SPIRONOLACTONE [Concomitant]
     Indication: FLUID OVERLOAD
     Route: 048
  4. LEVOXYL [Concomitant]
     Indication: HYPOTHYROIDISM
     Route: 048
  5. COUMADIN [Concomitant]
     Route: 048
  6. ESTRADIOL [Concomitant]
     Indication: POSTMENOPAUSE
     Route: 048
  7. FACIAL MAKEUP WITH SPF 15 [Concomitant]
     Route: 061
  8. CERAVE HYDRATING CLEANSER [Concomitant]
     Indication: THERAPEUTIC SKIN CARE TOPICAL
     Route: 061
  9. ESTEE LAUDER SENSITIVE SKIN CLEANSER [Concomitant]
     Indication: THERAPEUTIC SKIN CARE TOPICAL
     Route: 061
  10. AVEENO CALMING LOTION WITH SPF 15 [Concomitant]
     Indication: PROPHYLAXIS AGAINST SOLAR RADIATION
     Route: 061

REACTIONS (1)
  - Drug ineffective [Not Recovered/Not Resolved]
